FAERS Safety Report 5024836-1 (Version None)
Quarter: 2006Q2

REPORT INFORMATION
  Report Type: 
  Country: None (occurrence: None)
  Receive Date: 20060613
  Receipt Date: 20060421
  Transmission Date: 20061013
  Serious: Yes (Hospitalization, Other)
  Sender: FDA-Public Use
  Company Number: PHEH2006US05279

PATIENT
  Age: 16 Year
  Sex: Male

DRUGS (4)
  1. TRILEPTAL [Suspect]
     Indication: BIPOLAR DISORDER
     Route: 048
     Dates: start: 20050501, end: 20050701
  2. ABILIFY [Suspect]
     Indication: BIPOLAR DISORDER
     Route: 048
     Dates: start: 20050101, end: 20050701
  3. TRAZODONE HCL [Suspect]
     Dosage: 50 MG, QHS
     Route: 048
     Dates: start: 20050101, end: 20050701
  4. DEXEDRINE [Concomitant]
     Indication: CONVULSION
     Dosage: UNK, UNK
     Dates: start: 19970101

REACTIONS (9)
  - ABASIA [None]
  - AGGRESSION [None]
  - AGITATION [None]
  - CONVULSION [None]
  - FALL [None]
  - LIBIDO INCREASED [None]
  - MANIA [None]
  - PAINFUL ERECTION [None]
  - SLEEP DISORDER [None]
